FAERS Safety Report 21950403 (Version 1)
Quarter: 2023Q1

REPORT INFORMATION
  Report Type: Spontaneous
  Country: CN (occurrence: CN)
  Receive Date: 20230203
  Receipt Date: 20230203
  Transmission Date: 20230418
  Serious: Yes (Life-Threatening, Hospitalization)
  Sender: FDA-Public Use
  Company Number: CN-BAYER-2023A013506

PATIENT
  Age: 63 Year
  Sex: Female

DRUGS (1)
  1. POLYETHYLENE GLYCOL 3350 [Suspect]
     Active Substance: POLYETHYLENE GLYCOL 3350
     Indication: Bowel preparation
     Dosage: UNK
     Dates: start: 202109

REACTIONS (2)
  - Hyponatraemic encephalopathy [Recovered/Resolved]
  - Contraindicated product administered [None]

NARRATIVE: CASE EVENT DATE: 20210901
